FAERS Safety Report 6808442-1 (Version None)
Quarter: 2010Q2

REPORT INFORMATION
  Report Type: 
  Country: None (occurrence: None)
  Receive Date: 20100629
  Receipt Date: 20090818
  Transmission Date: 20101027
  Serious: No
  Sender: FDA-Public Use
  Company Number: US-PFIZER INC-2009206976

PATIENT
  Sex: Male
  Weight: 287 kg

DRUGS (2)
  1. ZYVOX [Suspect]
     Indication: CELLULITIS STAPHYLOCOCCAL
     Dosage: 600 MG, 2X/DAY
     Route: 042
     Dates: start: 20090415, end: 20090415
  2. ZYVOX [Suspect]
     Dosage: 600 MG, 2X/DAY
     Route: 048
     Dates: start: 20090420, end: 20090429

REACTIONS (1)
  - DRUG INEFFECTIVE [None]
